FAERS Safety Report 16410384 (Version 1)
Quarter: 2019Q2

REPORT INFORMATION
  Report Type: Spontaneous
  Country: US (occurrence: US)
  Receive Date: 20190610
  Receipt Date: 20190610
  Transmission Date: 20190711
  Serious: No
  Sender: FDA-Public Use
  Company Number: US-PFIZER INC-2019245173

PATIENT
  Age: 54 Year
  Sex: Male

DRUGS (2)
  1. PREDNISONE. [Suspect]
     Active Substance: PREDNISONE
     Dosage: 10 MG, DAILY
  2. METHOTREXATE SODIUM. [Suspect]
     Active Substance: METHOTREXATE SODIUM
     Dosage: UNK
     Route: 058

REACTIONS (6)
  - Productive cough [Unknown]
  - Pain [Unknown]
  - Drug ineffective [Unknown]
  - Diarrhoea [Unknown]
  - Grip strength decreased [Unknown]
  - Pyrexia [Unknown]
